FAERS Safety Report 15009665 (Version 2)
Quarter: 2018Q2

REPORT INFORMATION
  Report Type: Spontaneous
  Country: IT (occurrence: IT)
  Receive Date: 20180614
  Receipt Date: 20180621
  Transmission Date: 20180711
  Serious: Yes (Hospitalization)
  Sender: FDA-Public Use
  Company Number: IT-AUROBINDO-AUR-APL-2018-031386

PATIENT
  Age: 69 Year
  Sex: Female

DRUGS (1)
  1. AMOXICILLIN. [Suspect]
     Active Substance: AMOXICILLIN
     Indication: PRODUCT USED FOR UNKNOWN INDICATION
     Dosage: 2 GRAM IN TOTAL
     Route: 048
     Dates: start: 20180528, end: 20180529

REACTIONS (3)
  - Asthenia [Recovered/Resolved]
  - Dysphonia [Recovered/Resolved]
  - Erythema [Recovered/Resolved]

NARRATIVE: CASE EVENT DATE: 20180529
